FAERS Safety Report 5731537-0 (Version None)
Quarter: 2008Q2

REPORT INFORMATION
  Report Type: 
  Country: None (occurrence: None)
  Receive Date: 20080506
  Receipt Date: 20080506
  Transmission Date: 20081010
  Serious: Yes (Other)
  Sender: FDA-Public Use
  Company Number: None

PATIENT
  Age: 61 Year
  Sex: Male
  Weight: 93.8946 kg

DRUGS (1)
  1. FLOMAX [Suspect]
     Indication: URINARY INCONTINENCE
     Dosage: .4 MG AT BEDTIME PO
     Route: 048
     Dates: start: 20080428, end: 20080504

REACTIONS (6)
  - EJACULATION FAILURE [None]
  - ERYTHEMA [None]
  - EXCESSIVE MASTURBATION [None]
  - GROIN PAIN [None]
  - PENIS DISORDER [None]
  - TESTICULAR PAIN [None]
